FAERS Safety Report 11147801 (Version 1)
Quarter: 2015Q2

REPORT INFORMATION
  Report Type: Spontaneous
  Country: JP (occurrence: JP)
  Receive Date: 20150529
  Receipt Date: 20150529
  Transmission Date: 20150821
  Serious: Yes (Death, Other)
  Sender: FDA-Public Use
  Company Number: JP-ACTELION-A-CH2015-118376

PATIENT
  Age: 50 Year
  Sex: Female
  Weight: 58.5 kg

DRUGS (8)
  1. CARELOAD [Suspect]
     Active Substance: BERAPROST SODIUM
     Indication: PULMONARY HYPERTENSION
     Route: 065
  2. SILDENAFIL. [Suspect]
     Active Substance: SILDENAFIL
     Dosage: 60 MG, QD
     Route: 048
     Dates: start: 20141230, end: 20150115
  3. TRACLEER [Suspect]
     Active Substance: BOSENTAN\BOSENTAN MONOHYDRATE
     Indication: PULMONARY HYPERTENSION
     Dosage: 31.25 MG, UNK
     Route: 048
     Dates: start: 20150103, end: 20150106
  4. TRACLEER [Suspect]
     Active Substance: BOSENTAN\BOSENTAN MONOHYDRATE
     Dosage: 62.5 MG, UNK
     Route: 048
     Dates: start: 20150107, end: 20150110
  5. TRACLEER [Suspect]
     Active Substance: BOSENTAN\BOSENTAN MONOHYDRATE
     Dosage: 125 MG, UNK
     Route: 048
     Dates: start: 20150114, end: 20150115
  6. TRACLEER [Suspect]
     Active Substance: BOSENTAN\BOSENTAN MONOHYDRATE
     Dosage: 93.75 MG, UNK
     Route: 048
     Dates: start: 20150111, end: 20150113
  7. SILDENAFIL. [Suspect]
     Active Substance: SILDENAFIL
     Dosage: 40 MG, QD
     Route: 048
     Dates: start: 20141227, end: 20141229
  8. SILDENAFIL. [Suspect]
     Active Substance: SILDENAFIL
     Indication: PULMONARY HYPERTENSION
     Dosage: 20 MG, QD
     Route: 048
     Dates: start: 20141223, end: 20141226

REACTIONS (14)
  - Pulmonary hypertension [Fatal]
  - Dyspnoea exertional [Recovered/Resolved]
  - Blood lactate dehydrogenase increased [Unknown]
  - Brain natriuretic peptide increased [Unknown]
  - C-reactive protein increased [Unknown]
  - Alanine aminotransferase increased [Unknown]
  - Gamma-glutamyltransferase increased [Unknown]
  - Blood creatinine increased [Unknown]
  - Blood pressure decreased [Fatal]
  - Dyspnoea [Unknown]
  - Aspartate aminotransferase increased [Unknown]
  - Cardio-respiratory arrest [Fatal]
  - Disease progression [Fatal]
  - Drug effect incomplete [Unknown]

NARRATIVE: CASE EVENT DATE: 20150109
